FAERS Safety Report 7244364-2 (Version None)
Quarter: 2011Q1

REPORT INFORMATION
  Report Type: 
  Country: None (occurrence: None)
  Receive Date: 20110125
  Receipt Date: 20110110
  Transmission Date: 20110831
  Serious: Yes (Hospitalization)
  Sender: FDA-Public Use
  Company Number: CA-SANOFI-AVENTIS-2011SA004436

PATIENT
  Age: 13 Year
  Sex: Male

DRUGS (3)
  1. DDAVP [Suspect]
     Indication: DIABETES INSIPIDUS
     Route: 065
  2. CORTICOSTEROIDS [Concomitant]
  3. THYROID HORMONES [Concomitant]

REACTIONS (3)
  - BRAIN OEDEMA [None]
  - HYPONATRAEMIA [None]
  - OSMOTIC DEMYELINATION SYNDROME [None]
